FAERS Safety Report 20806892 (Version 1)
Quarter: 2022Q2

REPORT INFORMATION
  Report Type: Spontaneous
  Country: ES (occurrence: ES)
  Receive Date: 20220510
  Receipt Date: 20220510
  Transmission Date: 20220720
  Serious: Yes (Hospitalization, Other)
  Sender: FDA-Public Use
  Company Number: ES-CELGENE-ESP-20220108305

PATIENT
  Age: 77 Year
  Sex: Female

DRUGS (15)
  1. AZACITIDINE [Suspect]
     Active Substance: AZACITIDINE
     Indication: Myelodysplastic syndrome
     Dosage: FREQUENCY TEXT: DAYS 1-5 AND 8,9
     Route: 058
     Dates: start: 20220117
  2. VENETOCLAX [Suspect]
     Active Substance: VENETOCLAX
     Indication: Myelodysplastic syndrome
     Dosage: FREQUENCY TEXT: NOT PROVIDED
     Route: 048
  3. ACETAMINOPHEN [Concomitant]
     Active Substance: ACETAMINOPHEN
     Indication: Pain
     Dosage: 1 AS REQUIRED
     Route: 048
  4. ACETAMINOPHEN [Concomitant]
     Active Substance: ACETAMINOPHEN
     Dosage: FREQUENCY TEXT: 1 AS REQUIRED
     Route: 048
     Dates: start: 20210930
  5. CARVEDILOL [Concomitant]
     Active Substance: CARVEDILOL
     Indication: Hypertriglyceridaemia
     Dosage: 6.25 MILLIGRAM
     Route: 048
     Dates: start: 20210930
  6. CLORAZEPATE DIPOTASSIUM [Concomitant]
     Active Substance: CLORAZEPATE DIPOTASSIUM
     Indication: Prophylaxis
     Dosage: 10 MILLIGRAM
     Route: 048
     Dates: start: 20210930
  7. EZETIMIBE [Concomitant]
     Active Substance: EZETIMIBE
     Indication: Hypertriglyceridaemia
     Dosage: 10 MILLIGRAM
     Route: 048
     Dates: start: 20210930
  8. LATANOPROST [Concomitant]
     Active Substance: LATANOPROST
     Indication: Prophylaxis
     Dosage: 50 MILLILITER
     Route: 065
     Dates: start: 20210930
  9. CIPROFLOXACIN [Concomitant]
     Active Substance: CIPROFLOXACIN
     Indication: Antiviral prophylaxis
     Dosage: 2 IN 1 D
     Route: 048
     Dates: start: 20220127, end: 20220206
  10. FUROSEMIDE [Concomitant]
     Active Substance: FUROSEMIDE
     Indication: Hypervolaemia
     Dosage: 1 IN 1 D, 1 TABLET,1 IN 1 D
     Route: 048
     Dates: start: 20220127
  11. ASCORBIC ACID\POTASSIUM BICARBONATE [Concomitant]
     Active Substance: ASCORBIC ACID\POTASSIUM BICARBONATE
     Indication: Mineral supplementation
     Dosage: 1 IN 1 D
     Route: 048
     Dates: start: 20220127
  12. OMEPRAZOLE [Concomitant]
     Active Substance: OMEPRAZOLE
     Indication: Prophylaxis
     Dosage: 20 MILLIGRAM
     Route: 048
     Dates: start: 20210930
  13. BRINZOLAMIDE\TIMOLOL [Concomitant]
     Active Substance: BRINZOLAMIDE\TIMOLOL
     Indication: Prophylaxis
     Dosage: 10/5 MG
     Route: 048
     Dates: start: 20210930
  14. METAMIZOLE [Concomitant]
     Active Substance: METAMIZOLE
     Indication: Pain
     Dosage: FREQUENCY TEXT: 1 AS REQUIRED
     Route: 048
     Dates: start: 20210930
  15. ACYCLOVIR [Concomitant]
     Active Substance: ACYCLOVIR
     Indication: Antiviral prophylaxis
     Route: 048
     Dates: start: 20220127

REACTIONS (2)
  - Subdural haematoma [Not Recovered/Not Resolved]
  - Staphylococcal infection [Recovered/Resolved]

NARRATIVE: CASE EVENT DATE: 20220120
